FAERS Safety Report 5596376-2 (Version None)
Quarter: 2008Q1

REPORT INFORMATION
  Report Type: 
  Country: None (occurrence: None)
  Receive Date: 20080118
  Receipt Date: 20080109
  Transmission Date: 20080703
  Serious: Yes (Death)
  Sender: FDA-Public Use
  Company Number: US-PFIZER INC-2008002816

PATIENT
  Age: 67 Year
  Sex: Female

DRUGS (7)
  1. ALPRAZOLAM [Suspect]
     Route: 048
  2. ATORVASTATIN [Suspect]
     Route: 048
  3. DILTIAZEM HCL [Suspect]
     Route: 048
  4. ALL OTHER THERAPEUTIC PRODUCTS [Suspect]
     Route: 048
  5. VENLAFAXINE HCL [Suspect]
     Route: 048
  6. BUSPIRONE HCL [Suspect]
     Route: 048
  7. TRAMADOL HCL [Suspect]
     Route: 048

REACTIONS (1)
  - COMPLETED SUICIDE [None]
